FAERS Safety Report 4846304-X (Version None)
Quarter: 2005Q4

REPORT INFORMATION
  Report Type: 
  Country: None (occurrence: None)
  Receive Date: 20051130
  Receipt Date: 20051115
  Transmission Date: 20060501
  Serious: Yes (Life-Threatening, Hospitalization)
  Sender: FDA-Public Use
  Company Number: DSA_81457_2005

PATIENT
  Age: 58 Year
  Sex: Female
  Weight: 83.9154 kg

DRUGS (19)
  1. XYREM [Suspect]
     Indication: NARCOLEPSY
     Dates: start: 20050905, end: 20050910
  2. XYREM [Suspect]
     Indication: NARCOLEPSY
     Dosage: 6 G TWICE NIGHTLY PO
     Route: 048
     Dates: start: 20050830, end: 20050904
  3. XYREM [Suspect]
     Indication: NARCOLEPSY
     Dosage: 2.25 G TWICE NIGHTLY PO
     Route: 048
     Dates: start: 20050827, end: 20050829
  4. GLIPIZIDE [Concomitant]
  5. LISINOPRIL [Concomitant]
  6. NORVASC [Concomitant]
  7. PROVIGIL [Concomitant]
  8. TRAZODONE HCL [Concomitant]
  9. ATIVAN [Concomitant]
  10. LASIX [Concomitant]
  11. POTASSIUM [Concomitant]
  12. IMITREX [Concomitant]
  13. PRIMROSE OIL [Concomitant]
  14. ELEUTHERA [Concomitant]
  15. COD LIVER OIL [Concomitant]
  16. MAGNESIUM [Concomitant]
  17. TETRACYCLINE [Concomitant]
  18. MULTI-VITAMIN [Concomitant]
  19. PRILOSEC [Concomitant]

REACTIONS (4)
  - DEPRESSION [None]
  - INSOMNIA [None]
  - SUICIDAL IDEATION [None]
  - TEARFULNESS [None]
